FAERS Safety Report 9192245 (Version 1)
Quarter: 2013Q1

REPORT INFORMATION
  Report Type: Spontaneous
  Country: US (occurrence: None)
  Receive Date: 20120703
  Receipt Date: 20120703
  Transmission Date: 20140127
  Serious: No
  Sender: FDA-Public Use
  Company Number: PHEH2012US011007

PATIENT
  Age: 48 Year
  Sex: Female
  Weight: 74.8 kg

DRUGS (7)
  1. GILENYA (FTY) CAPSULE, 0.5MG [Suspect]
     Route: 048
  2. CYMBALTA (DULOXETINE HYDROCHLORIDE) CAPSULE [Concomitant]
  3. AMBIEN (ZOLPIDEM TARTRATE) TABLET [Concomitant]
  4. DEPAKOTE (VALPROATE SEMISODIUM) [Concomitant]
  5. ALBUTEROL (SALBUTAMOL) ACTIVE SUBSTANCE [Concomitant]
  6. LEVOTHYROXINE (LEVOTHYROXINE) [Concomitant]
  7. SYMBICORT (BUDESONIDE, FORMOTEROL FUMARATE) AEROSOL [Concomitant]

REACTIONS (1)
  - Insomnia [None]
